FAERS Safety Report 19001643 (Version 1)
Quarter: 2021Q1

REPORT INFORMATION
  Report Type: Spontaneous
  Country: US (occurrence: US)
  Receive Date: 20210312
  Receipt Date: 20210312
  Transmission Date: 20210420
  Serious: No
  Sender: FDA-Public Use
  Company Number: US-FARMAPROD-202011-1530

PATIENT
  Age: 83 Year
  Sex: Female

DRUGS (17)
  1. CAPTOPRIL. [Concomitant]
     Active Substance: CAPTOPRIL
  2. BENADRYL [Concomitant]
     Active Substance: DIPHENHYDRAMINE HYDROCHLORIDE
  3. MELATONIN [Concomitant]
     Active Substance: MELATONIN
  4. ATORVASTATIN CALCIUM. [Concomitant]
     Active Substance: ATORVASTATIN CALCIUM
  5. OXERVATE [Suspect]
     Active Substance: CENEGERMIN-BKBJ
     Indication: NEUROTROPHIC KERATOPATHY
     Route: 047
     Dates: start: 20201013
  6. MULTIVITAMIN [Concomitant]
     Active Substance: VITAMINS
  7. BUSPIRONE HCL [Concomitant]
     Active Substance: BUSPIRONE HYDROCHLORIDE
  8. CITALOPRAM [Concomitant]
     Active Substance: CITALOPRAM HYDROBROMIDE
  9. ACYCLOVIR. [Concomitant]
     Active Substance: ACYCLOVIR
  10. OFLOXACIN. [Concomitant]
     Active Substance: OFLOXACIN
  11. AMIODARONE HCL [Concomitant]
     Active Substance: AMIODARONE HYDROCHLORIDE
  12. WARFARIN SODIUM. [Concomitant]
     Active Substance: WARFARIN SODIUM
  13. CYANOCOBALAMIN. [Concomitant]
     Active Substance: CYANOCOBALAMIN
  14. WARFARIN SODIUM. [Concomitant]
     Active Substance: WARFARIN SODIUM
  15. INVELTYS [Concomitant]
     Active Substance: LOTEPREDNOL ETABONATE
  16. OXERVATE [Suspect]
     Active Substance: CENEGERMIN-BKBJ
     Indication: HYPOAESTHESIA EYE
  17. LASIX [Concomitant]
     Active Substance: FUROSEMIDE

REACTIONS (2)
  - Ocular discomfort [Unknown]
  - Foreign body sensation in eyes [Unknown]

NARRATIVE: CASE EVENT DATE: 20201112
